FAERS Safety Report 11169052 (Version 3)
Quarter: 2015Q2

REPORT INFORMATION
  Report Type: Spontaneous
  Country: US (occurrence: US)
  Receive Date: 20150605
  Receipt Date: 20150610
  Transmission Date: 20150821
  Serious: Yes (Other)
  Sender: FDA-Public Use
  Company Number: US-BAYER-2015-289177

PATIENT
  Sex: Male

DRUGS (1)
  1. LEVITRA [Suspect]
     Active Substance: VARDENAFIL HYDROCHLORIDE TRIHYDRATE
     Dosage: 20 MG, UNK

REACTIONS (12)
  - Type 2 diabetes mellitus [None]
  - Heart rate increased [None]
  - Sexual dysfunction [None]
  - Fatigue [None]
  - Feeling guilty [None]
  - Adverse drug reaction [None]
  - Anorgasmia [None]
  - Erectile dysfunction [None]
  - Insomnia [None]
  - Palpitations [None]
  - Emotional distress [None]
  - Anxiety [None]

NARRATIVE: CASE EVENT DATE: 2015
